FAERS Safety Report 8311806-0 (Version None)
Quarter: 2012Q1

REPORT INFORMATION
  Report Type: 
  Country: None (occurrence: None)
  Receive Date: 20120315
  Receipt Date: 20110317
  Transmission Date: 20120608
  Serious: Yes (Other)
  Sender: FDA-Public Use
  Company Number: PHHY2011US22213

PATIENT
  Age: 58 Year
  Sex: Female

DRUGS (1)
  1. GILENYA [Suspect]
     Indication: MULTIPLE SCLEROSIS
     Dosage: 0.5 MG, DAILY, ORAL
     Route: 048
     Dates: start: 20110221

REACTIONS (10)
  - DYSPNOEA [None]
  - CHILLS [None]
  - NIGHT SWEATS [None]
  - PYREXIA [None]
  - CHEST PAIN [None]
  - COUGH [None]
  - FATIGUE [None]
  - PNEUMONIA [None]
  - DECREASED APPETITE [None]
  - MALAISE [None]
